FAERS Safety Report 25651324 (Version 3)
Quarter: 2025Q3

REPORT INFORMATION
  Report Type: Spontaneous
  Country: CA (occurrence: CA)
  Receive Date: 20250806
  Receipt Date: 20250918
  Transmission Date: 20251021
  Serious: No
  Sender: MYLAN
  Company Number: CA-MYLANLABS-2025M1062339

PATIENT
  Age: 14 Year
  Sex: Male

DRUGS (1)
  1. EPIPEN [Suspect]
     Active Substance: EPINEPHRINE
     Indication: Hypersensitivity

REACTIONS (1)
  - Product quality issue [Unknown]

NARRATIVE: CASE EVENT DATE: 20250715
